FAERS Safety Report 5870120-3 (Version None)
Quarter: 2008Q3

REPORT INFORMATION
  Report Type: 
  Country: None (occurrence: None)
  Receive Date: 20080904
  Receipt Date: 20080626
  Transmission Date: 20090109
  Serious: No
  Sender: FDA-Public Use
  Company Number: US-BAYER-200827733NA

PATIENT
  Age: 39 Year
  Sex: Female

DRUGS (2)
  1. YAZ [Suspect]
     Indication: CONTRACEPTION
     Route: 048
     Dates: start: 20071001
  2. SYNTHROID [Concomitant]
     Dates: start: 19690101

REACTIONS (2)
  - MIGRAINE [None]
  - THYROID DISORDER [None]
